FAERS Safety Report 9618128 (Version 1)
Quarter: 2013Q4

REPORT INFORMATION
  Report Type: Report from Study
  Country: US (occurrence: US)
  Receive Date: 20131014
  Receipt Date: 20131014
  Transmission Date: 20140711
  Serious: Yes (Hospitalization)
  Sender: FDA-Public Use
  Company Number: US-AMGEN-USACT2013070862

PATIENT
  Age: 30 Year
  Sex: Male
  Weight: 69.9 kg

DRUGS (4)
  1. PANITUMUMAB [Suspect]
     Indication: RECTAL CANCER STAGE IV
     Dosage: 380 MG, ONCE
     Route: 042
     Dates: start: 20130912
  2. IRINOTECAN HCL [Concomitant]
     Indication: RECTAL CANCER
     Dosage: 320 MG, ONCE
     Route: 042
     Dates: start: 20130912
  3. LEUCOVORIN                         /00566701/ [Concomitant]
     Indication: RECTAL CANCER
     Dosage: 360 MG, ONCE
     Route: 042
     Dates: start: 20130912
  4. 5 FU [Concomitant]
     Indication: RECTAL CANCER
     Dosage: 4325 MG, UNK
     Route: 042
     Dates: start: 20130912

REACTIONS (3)
  - Disease progression [Unknown]
  - Ascites [Unknown]
  - Abdominal pain [Unknown]
